FAERS Safety Report 17773012 (Version 3)
Quarter: 2020Q2

REPORT INFORMATION
  Report Type: Spontaneous
  Country: NL (occurrence: NL)
  Receive Date: 20200512
  Receipt Date: 20200526
  Transmission Date: 20200714
  Serious: Yes (Death, Hospitalization)
  Sender: FDA-Public Use
  Company Number: NL-ACTELION-A-CH2019-197192

PATIENT
  Age: 73 Year
  Sex: Male

DRUGS (3)
  1. REVATIO [Concomitant]
     Active Substance: SILDENAFIL CITRATE
     Dosage: 20 MG, TID
  2. OPSUMIT [Suspect]
     Active Substance: MACITENTAN
     Indication: PULMONARY ARTERIAL HYPERTENSION
     Dosage: 10 MG, OD
     Route: 048
  3. UPTRAVI [Suspect]
     Active Substance: SELEXIPAG
     Indication: PULMONARY ARTERIAL HYPERTENSION
     Dosage: 200 MCG, BID
     Route: 048

REACTIONS (5)
  - Death [Fatal]
  - Fluid retention [Unknown]
  - Pulmonary hypertension [Unknown]
  - Dyspnoea [Unknown]
  - Hospitalisation [Unknown]

NARRATIVE: CASE EVENT DATE: 20200507
